FAERS Safety Report 5361837-8 (Version None)
Quarter: 2007Q2

REPORT INFORMATION
  Report Type: 
  Country: None (occurrence: None)
  Receive Date: 20070619
  Receipt Date: 20070606
  Transmission Date: 20071010
  Serious: Yes (Other)
  Sender: FDA-Public Use
  Company Number: PHEH2007US08480

PATIENT
  Sex: Female

DRUGS (1)
  1. LAMISIL [Suspect]
     Route: 048
     Dates: start: 20070301

REACTIONS (5)
  - DIARRHOEA [None]
  - DIARRHOEA HAEMORRHAGIC [None]
  - EMOTIONAL DISORDER [None]
  - FATIGUE [None]
  - HEADACHE [None]
